FAERS Safety Report 5191217-X (Version None)
Quarter: 2006Q4

REPORT INFORMATION
  Report Type: 
  Country: None (occurrence: None)
  Receive Date: 20061218
  Receipt Date: 20061212
  Transmission Date: 20070319
  Serious: Yes (Other)
  Sender: FDA-Public Use
  Company Number: GXKR2006DE07865

PATIENT
  Sex: Female

DRUGS (1)
  1. METOHEXAL SUCC (NGX) (METOPROLOL) UNKNOWN, 47.5MG [Suspect]
     Dosage: ORAL
     Route: 048

REACTIONS (1)
  - CHRONIC LYMPHOCYTIC LEUKAEMIA [None]
